FAERS Safety Report 7443813-4 (Version None)
Quarter: 2011Q2

REPORT INFORMATION
  Report Type: 
  Country: None (occurrence: None)
  Receive Date: 20110428
  Receipt Date: 20110425
  Transmission Date: 20111010
  Serious: Yes (Death)
  Sender: FDA-Public Use
  Company Number: US-GENENTECH-317596

PATIENT

DRUGS (2)
  1. EPTIFIBATIDE [Suspect]
     Indication: ISCHAEMIC STROKE
     Dosage: 180 A?G/KG, UNK
     Route: 013
  2. ACTIVASE [Suspect]
     Indication: ISCHAEMIC STROKE
     Route: 013

REACTIONS (1)
  - DEATH [None]
